FAERS Safety Report 9668921 (Version 32)
Quarter: 2024Q4

REPORT INFORMATION
  Report Type: Spontaneous
  Country: GB (occurrence: GB)
  Receive Date: 20131105
  Receipt Date: 20241218
  Transmission Date: 20250115
  Serious: Yes (Life-Threatening, Hospitalization, Disabling, Other)
  Sender: MYLAN
  Company Number: GB-GLAXOSMITHKLINE-B0740896A

PATIENT
  Age: 31 Year
  Sex: Female
  Weight: 63.5 kg

DRUGS (97)
  1. OMEPRAZOLE [Interacting]
     Active Substance: OMEPRAZOLE
     Indication: Dyspepsia
     Dosage: 20 MILLIGRAM, QD
     Route: 048
  2. OMEPRAZOLE [Interacting]
     Active Substance: OMEPRAZOLE
     Dosage: 20 MILLIGRAM, QD
     Route: 048
  3. MIRTAZAPINE [Interacting]
     Active Substance: MIRTAZAPINE
     Indication: Depression
     Dosage: 20 MILLIGRAM, TID
     Route: 048
  4. MIRTAZAPINE [Interacting]
     Active Substance: MIRTAZAPINE
     Indication: Psychotic disorder
     Dosage: (30 MG QD,15 MG AT NIGHT,TABLET)
     Route: 048
     Dates: end: 20101108
  5. MIRTAZAPINE [Interacting]
     Active Substance: MIRTAZAPINE
     Dosage: 20 MILLIGRAM, BID
     Route: 048
  6. MIRTAZAPINE [Interacting]
     Active Substance: MIRTAZAPINE
     Dosage: (30 MG IN THE DAY AND 15 MG AT NIGHT),
     Route: 048
     Dates: end: 20101012
  7. MIRTAZAPINE [Interacting]
     Active Substance: MIRTAZAPINE
     Dosage: 20 MILLIGRAM, QD
     Route: 065
  8. MIRTAZAPINE [Interacting]
     Active Substance: MIRTAZAPINE
     Dosage: UNK UNK, QD
     Route: 048
     Dates: end: 20101108
  9. MIRTAZAPINE [Interacting]
     Active Substance: MIRTAZAPINE
     Dosage: UNK
     Route: 065
     Dates: end: 20110506
  10. MIRTAZAPINE [Interacting]
     Active Substance: MIRTAZAPINE
     Dosage: (30MG IN THE DAY AND 15MG AT NIGHT)
     Route: 065
     Dates: end: 20110506
  11. MIRTAZAPINE [Interacting]
     Active Substance: MIRTAZAPINE
     Dosage: (30MG IN THE DAY AND 15MG AT NIGHT)
     Route: 065
     Dates: end: 20110506
  12. MIRTAZAPINE [Interacting]
     Active Substance: MIRTAZAPINE
     Dosage: UNK (30MG IN THE DAY AND 15MG AT NIGHT)
     Route: 065
  13. MIRTAZAPINE [Interacting]
     Active Substance: MIRTAZAPINE
     Dosage: 15 MILLIGRAM, BID
     Route: 065
     Dates: end: 20101108
  14. PAROXETINE [Interacting]
     Active Substance: PAROXETINE
     Indication: Depression
     Dosage: UNK
     Route: 065
  15. PAROXETINE [Interacting]
     Active Substance: PAROXETINE
     Indication: Post-traumatic stress disorder
     Dosage: 20 MILLIGRAM, TID/ 60 MG QD
     Route: 048
     Dates: start: 1997, end: 201105
  16. PAROXETINE [Interacting]
     Active Substance: PAROXETINE
     Dosage: 20 MILLIGRAM, TID, 60 MG (20 MG TID INTERRUPTED)
     Route: 048
     Dates: start: 1997
  17. PAROXETINE [Interacting]
     Active Substance: PAROXETINE
     Dosage: 40 MILLIGRAM, QD
     Route: 048
     Dates: start: 19990801, end: 20110706
  18. PAROXETINE [Interacting]
     Active Substance: PAROXETINE
     Dosage: 40 MILLIGRAM, QD
     Route: 048
     Dates: end: 20110706
  19. PAROXETINE [Interacting]
     Active Substance: PAROXETINE
     Dosage: 40 MILLIGRAM, QD
     Route: 048
     Dates: start: 19990801, end: 20110706
  20. PAROXETINE [Interacting]
     Active Substance: PAROXETINE
     Dosage: 60 MILLIGRAM, QD 60 MG, QD (20 MG TID)
     Route: 048
     Dates: start: 19990801, end: 201105
  21. PAROXETINE [Interacting]
     Active Substance: PAROXETINE
     Dosage: UNK
     Route: 048
     Dates: start: 1996, end: 201105
  22. PAROXETINE [Interacting]
     Active Substance: PAROXETINE
     Dosage: 20 MILLIGRAM, TID
     Route: 048
     Dates: end: 20110706
  23. PAROXETINE [Interacting]
     Active Substance: PAROXETINE
     Dosage: UNK
     Route: 065
     Dates: start: 1999
  24. PAROXETINE [Interacting]
     Active Substance: PAROXETINE
     Dosage: 60 MILLIGRAM, QD 60 MG, QD (20 MG TID)
     Route: 048
     Dates: start: 199908, end: 201105
  25. PAROXETINE [Interacting]
     Active Substance: PAROXETINE
     Dosage: 60 MILLIGRAM
     Route: 048
     Dates: start: 1997, end: 201105
  26. PAROXETINE [Interacting]
     Active Substance: PAROXETINE
     Dosage: UNK
     Route: 048
  27. TRAMADOL [Interacting]
     Active Substance: TRAMADOL
     Indication: Analgesic therapy
     Dosage: UNK
     Route: 065
  28. TRAMADOL [Interacting]
     Active Substance: TRAMADOL
     Indication: Neck pain
     Dosage: 4 DOSAGE FORM, QD
     Route: 048
  29. TRAMADOL [Interacting]
     Active Substance: TRAMADOL
     Indication: Back pain
     Dosage: 1 DOSAGE FORM, QD
     Route: 048
     Dates: end: 20101210
  30. TRAMADOL [Interacting]
     Active Substance: TRAMADOL
     Indication: Oculogyric crisis
     Dosage: 4 CYCLICAL, QD, 50-100 MG QD
     Route: 048
     Dates: end: 20101210
  31. TRAMADOL [Interacting]
     Active Substance: TRAMADOL
     Dosage: 5 MILLIGRAM, QD
     Route: 044
     Dates: start: 1995, end: 1995
  32. TRAMADOL [Interacting]
     Active Substance: TRAMADOL
     Dosage: 5 MILLIGRAM, QD
     Route: 044
     Dates: start: 1995, end: 1996
  33. TRAMADOL [Interacting]
     Active Substance: TRAMADOL
     Dosage: 5 MG, 4 TIMES A DAY
     Route: 065
  34. TRAMADOL [Interacting]
     Active Substance: TRAMADOL
     Dosage: 8 MG, QD
     Route: 065
  35. TRAMADOL [Interacting]
     Active Substance: TRAMADOL
     Dosage: 4 CYCLICAL, 2008/2009, (50-100MG QDS ONE WEEK)
     Route: 048
  36. TRAMADOL [Interacting]
     Active Substance: TRAMADOL
     Dosage: UNK, 2008/2009, DRUG START/DRUG WITHDRAWN
     Route: 048
     Dates: end: 2009
  37. TRAMADOL [Interacting]
     Active Substance: TRAMADOL
     Dosage: 8 MILLIGRAM, QD
     Route: 048
  38. TRAMADOL [Interacting]
     Active Substance: TRAMADOL
     Dosage: QID (50-100MG)
     Route: 048
  39. DOMPERIDONE [Interacting]
     Active Substance: DOMPERIDONE
     Indication: Product used for unknown indication
     Dosage: UNK
     Route: 048
  40. DOMPERIDONE [Interacting]
     Active Substance: DOMPERIDONE
     Dosage: UNK
     Route: 048
     Dates: end: 20101108
  41. PROCYCLIDINE [Interacting]
     Active Substance: PROCYCLIDINE
     Indication: Oculogyric crisis
     Dosage: 5 MILLIGRAM, QD
     Route: 048
     Dates: start: 1995, end: 1995
  42. PROCYCLIDINE [Interacting]
     Active Substance: PROCYCLIDINE
     Indication: Extrapyramidal disorder
     Dosage: 5 MILLIGRAM, TID/15 MILLIGRAM QD
     Route: 048
     Dates: start: 1995, end: 1996
  43. PROCYCLIDINE [Interacting]
     Active Substance: PROCYCLIDINE
     Dosage: 5 MILLIGRAM, QD
     Route: 048
  44. PROCYCLIDINE [Interacting]
     Active Substance: PROCYCLIDINE
     Dosage: 20 MG, QD, IN 1ST TRIMESTER
     Route: 065
  45. PROCYCLIDINE [Interacting]
     Active Substance: PROCYCLIDINE
     Dosage: 20 MILLIGRAM, QD
     Route: 048
     Dates: end: 20110506
  46. PROCYCLIDINE [Interacting]
     Active Substance: PROCYCLIDINE
     Dosage: 15 MILLIGRAM, QD
     Route: 048
     Dates: end: 20110510
  47. PROCYCLIDINE [Interacting]
     Active Substance: PROCYCLIDINE
     Dosage: UNK
     Route: 065
  48. PROCYCLIDINE [Interacting]
     Active Substance: PROCYCLIDINE
     Dosage: 25 MILLIGRAM, QD
     Route: 048
     Dates: start: 1995, end: 1996
  49. PROCYCLIDINE [Interacting]
     Active Substance: PROCYCLIDINE
     Dosage: 5 MILLIGRAM, QD
     Route: 048
     Dates: start: 1995, end: 1996
  50. QUETIAPINE [Interacting]
     Active Substance: QUETIAPINE
     Indication: Psychotic disorder
     Dosage: 300 MILLIGRAM
     Route: 048
  51. QUETIAPINE [Interacting]
     Active Substance: QUETIAPINE
     Dosage: UNK
     Route: 048
     Dates: start: 19990801, end: 20110706
  52. QUETIAPINE [Interacting]
     Active Substance: QUETIAPINE
     Dosage: 300 MILLIGRAM
     Route: 048
     Dates: end: 20110506
  53. PAROXETINE [Interacting]
     Active Substance: PAROXETINE
     Indication: Depression
     Dosage: 60 MILLIGRAM, 20 MG INTERRUPTED
     Route: 048
     Dates: start: 1997
  54. PAROXETINE [Interacting]
     Active Substance: PAROXETINE
     Dosage: UNK
     Route: 048
     Dates: start: 1999
  55. PAROXETINE [Interacting]
     Active Substance: PAROXETINE
     Dosage: 20MG THREE TIMES PER DAY (60 MILLIGRAM, QD)
     Route: 048
     Dates: start: 19990801, end: 201105
  56. PAROXETINE [Interacting]
     Active Substance: PAROXETINE
     Dosage: UNK
     Route: 048
  57. PAROXETINE [Interacting]
     Active Substance: PAROXETINE
     Dosage: 20 MILLIGRAM, QD
     Route: 048
     Dates: end: 20110706
  58. PAROXETINE [Interacting]
     Active Substance: PAROXETINE
     Dosage: 40 MILLIGRAM, QD
     Route: 048
     Dates: end: 20110706
  59. PAROXETINE [Interacting]
     Active Substance: PAROXETINE
     Dosage: 20 MILLIGRAM, TID
     Route: 048
     Dates: start: 1997
  60. PAROXETINE [Interacting]
     Active Substance: PAROXETINE
     Dosage: QD (20 MG 3 TIMES PER DAY)
     Route: 048
     Dates: start: 19990801, end: 201105
  61. PAROXETINE [Interacting]
     Active Substance: PAROXETINE
     Dosage: 180 MILLIGRAM, TID, 180 MG, TID (60 MG TID)
     Route: 048
     Dates: start: 19990801, end: 201105
  62. PAROXETINE [Interacting]
     Active Substance: PAROXETINE
     Dosage: UNK
     Route: 048
  63. PAROXETINE [Interacting]
     Active Substance: PAROXETINE
     Dosage: UNK UNK, QD
     Route: 048
     Dates: end: 20101210
  64. PAROXETINE [Interacting]
     Active Substance: PAROXETINE
     Dosage: UNK, INTERRUPTED
     Route: 048
     Dates: end: 20101210
  65. PAROXETINE [Interacting]
     Active Substance: PAROXETINE
     Dosage: 20 MILLIGRAM, BID
     Route: 048
     Dates: end: 20110706
  66. CODEINE [Interacting]
     Active Substance: CODEINE
     Indication: Analgesic therapy
     Dosage: UNK
     Route: 048
     Dates: start: 2002, end: 2002
  67. CODEINE [Interacting]
     Active Substance: CODEINE
     Indication: Serotonin syndrome
     Dosage: UNK
     Route: 048
  68. CODEINE [Interacting]
     Active Substance: CODEINE
     Dosage: 1 DOSAGE FORM, QD, UNK (15-30 MG)
     Route: 048
     Dates: end: 20110723
  69. CODEINE [Interacting]
     Active Substance: CODEINE
     Dosage: UNK
     Route: 048
  70. CODEINE [Interacting]
     Active Substance: CODEINE
     Dosage: UNK UNK, QD
     Route: 048
     Dates: end: 20110410
  71. CODEINE [Interacting]
     Active Substance: CODEINE
     Dosage: UNK
     Route: 048
     Dates: end: 20110410
  72. CODEINE [Interacting]
     Active Substance: CODEINE
     Dosage: UNK, 24 - EVERY HOUR
     Route: 048
     Dates: end: 20110723
  73. CLONAZEPAM [Interacting]
     Active Substance: CLONAZEPAM
     Indication: Sedation
     Dosage: UNK
     Route: 048
  74. CLONAZEPAM [Interacting]
     Active Substance: CLONAZEPAM
     Dosage: UNK, UNSURE
     Route: 048
     Dates: end: 20110410
  75. LORAZEPAM [Interacting]
     Active Substance: LORAZEPAM
     Indication: Sedation
     Dosage: UNK
     Route: 065
  76. LORAZEPAM [Interacting]
     Active Substance: LORAZEPAM
     Dosage: 1 MILLIGRAM, QID
     Route: 048
     Dates: end: 20110410
  77. LORAZEPAM [Interacting]
     Active Substance: LORAZEPAM
     Dosage: 1 MILLIGRAM, QD
     Route: 048
     Dates: end: 20110627
  78. LORAZEPAM [Interacting]
     Active Substance: LORAZEPAM
     Dosage: 4 MILLIGRAM, QD
     Route: 048
     Dates: end: 20110627
  79. LORAZEPAM [Interacting]
     Active Substance: LORAZEPAM
     Dosage: 4 MILLIGRAM
     Route: 048
     Dates: end: 20110410
  80. LORAZEPAM [Interacting]
     Active Substance: LORAZEPAM
     Dosage: 4 MILLIGRAM, QD
     Route: 048
     Dates: end: 20110410
  81. LORAZEPAM [Interacting]
     Active Substance: LORAZEPAM
     Dosage: 16 MILLIGRAM, QD
     Route: 048
     Dates: end: 20110627
  82. LORAZEPAM [Interacting]
     Active Substance: LORAZEPAM
     Dosage: 1 MILLIGRAM
     Route: 048
     Dates: end: 20111125
  83. LORAZEPAM [Interacting]
     Active Substance: LORAZEPAM
     Dosage: 4 MILLIGRAM, QD
     Route: 048
     Dates: end: 20110410
  84. AMITRIPTYLINE [Interacting]
     Active Substance: AMITRIPTYLINE
     Indication: Muscle spasms
     Dosage: UNK
     Route: 065
  85. AMITRIPTYLINE [Interacting]
     Active Substance: AMITRIPTYLINE
     Indication: Neuralgia
     Dosage: 25 MG,HS (25 MILLIGRAM, QD)
     Route: 065
  86. AMITRIPTYLINE [Interacting]
     Active Substance: AMITRIPTYLINE
     Indication: Serotonin syndrome
     Dosage: UNK
     Route: 065
  87. AMITRIPTYLINE [Interacting]
     Active Substance: AMITRIPTYLINE
     Indication: Drug withdrawal syndrome
     Dosage: 25 MG,HS (25 MILLIGRAM, QD)
     Route: 065
  88. AMITRIPTYLINE [Interacting]
     Active Substance: AMITRIPTYLINE
     Dosage: UNK, PM (AT NIGHT)
     Route: 065
  89. DIAZEPAM [Interacting]
     Active Substance: DIAZEPAM
     Indication: Muscle spasms
     Dosage: 8 MILLIGRAM, QD
     Route: 065
  90. DIAZEPAM [Interacting]
     Active Substance: DIAZEPAM
     Indication: Serotonin syndrome
     Dosage: 5 MILLIGRAM, QD
     Route: 048
  91. DIAZEPAM [Interacting]
     Active Substance: DIAZEPAM
     Indication: Depression
     Dosage: 8 MILLIGRAM, QD
     Route: 048
  92. DIAZEPAM [Interacting]
     Active Substance: DIAZEPAM
     Dosage: UNK
     Route: 048
  93. DIAZEPAM [Interacting]
     Active Substance: DIAZEPAM
     Dosage: 20 MG, QD 5 MILLIGRAM, QID (5 MG QDS AND NOW ON
     Route: 048
     Dates: end: 20110725
  94. DIAZEPAM [Interacting]
     Active Substance: DIAZEPAM
     Dosage: 20 MILLIGRAM, QID
     Route: 065
  95. DIAZEPAM [Interacting]
     Active Substance: DIAZEPAM
     Dosage: 5 MILLIGRAM, QID
     Route: 048
  96. PHOSPHORUS [Suspect]
     Active Substance: PHOSPHORUS
     Indication: Product used for unknown indication
     Dosage: UNK
     Route: 065
  97. DIAZEPAM [Concomitant]
     Active Substance: DIAZEPAM
     Dosage: UNK
     Route: 065

REACTIONS (98)
  - Nightmare [Unknown]
  - Contusion [Not Recovered/Not Resolved]
  - Muscle spasms [Not Recovered/Not Resolved]
  - Mania [Unknown]
  - Dyspnoea [Unknown]
  - Fatigue [Unknown]
  - Musculoskeletal stiffness [Unknown]
  - Tremor [Not Recovered/Not Resolved]
  - Feeling jittery [Unknown]
  - Premature labour [Unknown]
  - Sleep disorder [Unknown]
  - Headache [Unknown]
  - Myalgia [Unknown]
  - Arthralgia [Unknown]
  - Feeling of despair [Unknown]
  - Disturbance in attention [Unknown]
  - Asthenia [Unknown]
  - Confusional state [Not Recovered/Not Resolved]
  - Muscle disorder [Unknown]
  - Emotional disorder [Unknown]
  - Irritability [Unknown]
  - Visual impairment [Unknown]
  - Depression [Unknown]
  - Suicidal ideation [Not Recovered/Not Resolved]
  - Decreased appetite [Unknown]
  - Dizziness [Unknown]
  - Blood sodium decreased [Unknown]
  - Depersonalisation/derealisation disorder [Not Recovered/Not Resolved]
  - H1N1 influenza [Unknown]
  - Menstruation irregular [Unknown]
  - Insomnia [Unknown]
  - Seizure [Unknown]
  - Pruritus [Unknown]
  - Psychotic disorder [Recovered/Resolved]
  - Sensory loss [Unknown]
  - Illness [Unknown]
  - Feeling of body temperature change [Unknown]
  - Incontinence [Not Recovered/Not Resolved]
  - Urinary retention [Unknown]
  - Balance disorder [Unknown]
  - Swollen tongue [Unknown]
  - Vision blurred [Unknown]
  - Speech disorder [Unknown]
  - Hypoaesthesia [Not Recovered/Not Resolved]
  - Swelling face [Unknown]
  - Lip swelling [Unknown]
  - Mouth swelling [Unknown]
  - Hyperchlorhydria [Unknown]
  - Facial paralysis [Unknown]
  - Tinnitus [Unknown]
  - Cogwheel rigidity [Unknown]
  - Drooling [Unknown]
  - Eye pain [Unknown]
  - Schizophrenia [Unknown]
  - Condition aggravated [Unknown]
  - Gait disturbance [Unknown]
  - Pupillary light reflex tests abnormal [Unknown]
  - Serotonin syndrome [Not Recovered/Not Resolved]
  - Toxicity to various agents [Unknown]
  - Paraesthesia [Unknown]
  - Neuroleptic malignant syndrome [Unknown]
  - Cyanosis [Unknown]
  - Drug withdrawal syndrome [Unknown]
  - Dystonia [Unknown]
  - Pallor [Unknown]
  - Paralysis [Unknown]
  - Mydriasis [Unknown]
  - Restlessness [Not Recovered/Not Resolved]
  - Muscle rigidity [Unknown]
  - Tachycardia [Unknown]
  - Disorientation [Not Recovered/Not Resolved]
  - Skin discolouration [Not Recovered/Not Resolved]
  - Aphasia [Not Recovered/Not Resolved]
  - Diarrhoea [Unknown]
  - Agitation [Unknown]
  - Delirium [Unknown]
  - Menstrual disorder [Unknown]
  - Mood swings [Unknown]
  - Vomiting [Unknown]
  - Anxiety [Unknown]
  - Hyperhidrosis [Unknown]
  - Dissociation [Not Recovered/Not Resolved]
  - Hallucinations, mixed [Unknown]
  - Hypoaesthesia oral [Unknown]
  - Parosmia [Unknown]
  - Heart rate increased [Unknown]
  - Restless legs syndrome [Not Recovered/Not Resolved]
  - Derealisation [Not Recovered/Not Resolved]
  - Dyskinesia [Unknown]
  - Gastric pH decreased [Unknown]
  - Somnolence [Not Recovered/Not Resolved]
  - Pyrexia [Unknown]
  - Drug interaction [Unknown]
  - Therapeutic product ineffective [Unknown]
  - Maternal exposure during pregnancy [Unknown]
  - Limb injury [Unknown]
  - Pain [Unknown]
  - Off label use [Unknown]

NARRATIVE: CASE EVENT DATE: 20030101
